FAERS Safety Report 8604445-5 (Version None)
Quarter: 2012Q2

REPORT INFORMATION
  Report Type: 
  Country: None (occurrence: None)
  Receive Date: 20120423
  Receipt Date: 20090627
  Transmission Date: 20120825
  Serious: Yes (Death, Other)
  Sender: FDA-Public Use
  Company Number: PHEH2009US13311

PATIENT
  Age: 72 Year
  Sex: Male
  Weight: 97.2 kg

DRUGS (6)
  1. EXJADE [Suspect]
     Indication: MYELODYSPLASTIC SYNDROME
     Dosage: 1000 MG, QD, ORAL
     Route: 048
     Dates: start: 20090217, end: 20090414
  2. EXJADE [Suspect]
     Indication: IRON OVERLOAD
     Dosage: 1000 MG, QD, ORAL
     Route: 048
     Dates: start: 20090217, end: 20090414
  3. TARGRETIN [Concomitant]
  4. TRICOR [Concomitant]
  5. ARANESP [Concomitant]
  6. LEVOTHYROXINE SODIUM [Concomitant]

REACTIONS (5)
  - SERUM FERRITIN INCREASED [None]
  - MYELODYSPLASTIC SYNDROME [None]
  - NEOPLASM MALIGNANT [None]
  - CHRONIC MYELOMONOCYTIC LEUKAEMIA [None]
  - ACUTE MYELOID LEUKAEMIA [None]
